FAERS Safety Report 8418318-4 (Version None)
Quarter: 2012Q2

REPORT INFORMATION
  Report Type: 
  Country: None (occurrence: None)
  Receive Date: 20120607
  Receipt Date: 20120531
  Transmission Date: 20120825
  Serious: Yes (Hospitalization, Congenital Anomaly, Other)
  Sender: FDA-Public Use
  Company Number: DE-TEVA-340786GER

PATIENT
  Age: 0 Year
  Sex: Female

DRUGS (1)
  1. PAROXETINE HCL [Suspect]
     Route: 064

REACTIONS (2)
  - URACHAL ABNORMALITY [None]
  - DRUG WITHDRAWAL SYNDROME NEONATAL [None]
